FAERS Safety Report 7998165-8 (Version None)
Quarter: 2011Q4

REPORT INFORMATION
  Report Type: 
  Country: None (occurrence: None)
  Receive Date: 20111221
  Receipt Date: 20110317
  Transmission Date: 20120403
  Serious: No
  Sender: FDA-Public Use
  Company Number: US-GLAXOSMITHKLINE-A0918684A

PATIENT
  Sex: Male

DRUGS (3)
  1. CRESTOR [Concomitant]
     Dosage: 10MG PER DAY
  2. TRILIPIX [Concomitant]
     Dosage: 135MG PER DAY
  3. LOVAZA [Suspect]
     Indication: BLOOD TRIGLYCERIDES INCREASED
     Dosage: 2CAP TWICE PER DAY
     Route: 048
     Dates: start: 20101101, end: 20110201

REACTIONS (4)
  - PAIN [None]
  - INFLUENZA LIKE ILLNESS [None]
  - DYSGEUSIA [None]
  - FATIGUE [None]
